FAERS Safety Report 21528201 (Version 1)
Quarter: 2022Q4

REPORT INFORMATION
  Report Type: Spontaneous
  Country: US (occurrence: US)
  Receive Date: 20221031
  Receipt Date: 20221031
  Transmission Date: 20230113
  Serious: No
  Sender: FDA-Public Use
  Company Number: US-RECKITT BENCKISER HEALTHCARE INT LIMITED-RB-101141-2021

PATIENT
  Sex: Female

DRUGS (1)
  1. MUCINEX MAXIMUM STRENGTH [Suspect]
     Active Substance: GUAIFENESIN
     Indication: Secretion discharge
     Dosage: 1 DOSAGE FORM, QD
     Route: 048
     Dates: end: 20211208

REACTIONS (3)
  - Drug ineffective [Not Recovered/Not Resolved]
  - Product size issue [Unknown]
  - Product use complaint [Unknown]
